FAERS Safety Report 7060820-4 (Version None)
Quarter: 2010Q4

REPORT INFORMATION
  Report Type: 
  Country: None (occurrence: None)
  Receive Date: 20101025
  Receipt Date: 20101014
  Transmission Date: 20110411
  Serious: Yes (Other)
  Sender: FDA-Public Use
  Company Number: US-ELI_LILLY_AND_COMPANY-US201010003431

PATIENT
  Sex: Female

DRUGS (4)
  1. ADCIRCA [Suspect]
     Indication: PULMONARY ARTERIAL HYPERTENSION
     Dosage: 20 MG, 2/D
     Route: 065
     Dates: start: 20100217, end: 20101001
  2. DIGOXIN [Concomitant]
  3. PRILOSEC [Concomitant]
  4. ASPIRIN [Concomitant]

REACTIONS (3)
  - BRADYCARDIA [None]
  - DIZZINESS [None]
  - HEADACHE [None]
